FAERS Safety Report 18963871 (Version 2)
Quarter: 2021Q1

REPORT INFORMATION
  Report Type: Spontaneous
  Country: BG (occurrence: BG)
  Receive Date: 20210303
  Receipt Date: 20210304
  Transmission Date: 20210420
  Serious: Yes (Hospitalization, Other)
  Sender: FDA-Public Use
  Company Number: BG-009507513-2102BGR009358

PATIENT
  Age: 72 Year
  Sex: Male

DRUGS (9)
  1. CARBOPLATIN. [Suspect]
     Active Substance: CARBOPLATIN
     Dosage: DOSE: 75 MILLIGRAM/SQ. METER, UNK
     Dates: start: 20210222, end: 20210222
  2. PACLITAXEL. [Suspect]
     Active Substance: PACLITAXEL
     Indication: SQUAMOUS CELL CARCINOMA
     Dosage: DOSE: 200 MILLIGRAM/SQ. METER, UNK
     Dates: start: 20210111, end: 20210111
  3. CARBOPLATIN. [Suspect]
     Active Substance: CARBOPLATIN
     Indication: SQUAMOUS CELL CARCINOMA
     Dosage: DOSE: 75 MILLIGRAM/SQ. METER, UNK
     Dates: start: 20210111, end: 20210111
  4. KEYTRUDA [Suspect]
     Active Substance: PEMBROLIZUMAB
     Indication: SQUAMOUS CELL CARCINOMA
     Dosage: DOSE: 200 MILLIGRAM, UNK
     Dates: start: 20210111, end: 20210111
  5. PACLITAXEL. [Suspect]
     Active Substance: PACLITAXEL
     Dosage: DOSE: 200 MILLIGRAM/SQ. METER, UNK
     Dates: start: 20210201, end: 20210201
  6. CARBOPLATIN. [Suspect]
     Active Substance: CARBOPLATIN
     Dosage: DOSE: 75 MILLIGRAM/SQ. METER, UNK
     Dates: start: 20210201, end: 20210201
  7. KEYTRUDA [Suspect]
     Active Substance: PEMBROLIZUMAB
     Dosage: DOSE: 200 MILLIGRAM, UNK
     Dates: start: 20210201, end: 20210201
  8. KEYTRUDA [Suspect]
     Active Substance: PEMBROLIZUMAB
     Dosage: DOSE: 200 MILLIGRAM, UNK
     Dates: start: 20210222, end: 20210222
  9. PACLITAXEL. [Suspect]
     Active Substance: PACLITAXEL
     Dosage: DOSE: 200 MILLIGRAM/SQ. METER, UNK
     Dates: start: 20210222, end: 20210222

REACTIONS (8)
  - Cough [Recovered/Resolved]
  - Chest pain [Recovered/Resolved]
  - Fatigue [Recovered/Resolved]
  - Pyrexia [Recovered/Resolved]
  - Fatigue [Recovered/Resolved]
  - Leukopenia [Recovered/Resolved]
  - Decreased appetite [Recovered/Resolved]
  - Pulmonary congestion [Unknown]

NARRATIVE: CASE EVENT DATE: 202101
